FAERS Safety Report 15306715 (Version 1)
Quarter: 2018Q3

REPORT INFORMATION
  Report Type: Spontaneous
  Country: US (occurrence: US)
  Receive Date: 20180810
  Receipt Date: 20180810
  Transmission Date: 20181010
  Serious: Yes (Life-Threatening)
  Sender: FDA-Public Use
  Company Number: None

PATIENT
  Age: 63 Year
  Sex: Female
  Weight: 55.3 kg

DRUGS (3)
  1. AVYCAZ [Suspect]
     Active Substance: AVIBACTAM SODIUM\CEFTAZIDIME
     Indication: KLEBSIELLA INFECTION
     Route: 042
     Dates: start: 20180801, end: 20180807
  2. PAMIDRONATE [Concomitant]
     Active Substance: PAMIDRONATE DISODIUM
     Dates: start: 20180730, end: 20180730
  3. VANCOMYCIN [Concomitant]
     Active Substance: VANCOMYCIN
     Dates: start: 20180727, end: 20180806

REACTIONS (5)
  - Hypotension [None]
  - Lactic acidosis [None]
  - Acute kidney injury [None]
  - General physical health deterioration [None]
  - Toxic epidermal necrolysis [None]

NARRATIVE: CASE EVENT DATE: 20180808
